FAERS Safety Report 5690551-4 (Version None)
Quarter: 2008Q1

REPORT INFORMATION
  Report Type: 
  Country: None (occurrence: None)
  Receive Date: 20080331
  Receipt Date: 20080331
  Transmission Date: 20080703
  Serious: Yes (Other)
  Sender: FDA-Public Use
  Company Number: None

PATIENT
  Sex: Male
  Weight: 19.9583 kg

DRUGS (1)
  1. SINGULAIR [Suspect]
     Indication: ASTHMA
     Dosage: ONCE A DAY PO
     Route: 048
     Dates: start: 20060201, end: 20070115

REACTIONS (5)
  - ABDOMINAL PAIN UPPER [None]
  - HEADACHE [None]
  - MALAISE [None]
  - MOOD SWINGS [None]
  - NIGHTMARE [None]
